FAERS Safety Report 7629598-7 (Version None)
Quarter: 2011Q3

REPORT INFORMATION
  Report Type: 
  Country: None (occurrence: None)
  Receive Date: 20110722
  Receipt Date: 20110711
  Transmission Date: 20111222
  Serious: Yes (Hospitalization, Other)
  Sender: FDA-Public Use
  Company Number: DE-JNJFOC-20110707105

PATIENT
  Age: 82 Year
  Sex: Female

DRUGS (3)
  1. IBUPROFEN [Suspect]
     Indication: PRODUCT USED FOR UNKNOWN INDICATION
     Dosage: DAILY
     Route: 048
     Dates: end: 20110323
  2. SIMVASTATIN [Concomitant]
  3. MELPERONE [Suspect]
     Indication: PRODUCT USED FOR UNKNOWN INDICATION
     Dosage: 20-50 MG DAILY FOR TOTAL THERAPY DURATION OF 8 DAYS
     Route: 048
     Dates: start: 20110316, end: 20110323

REACTIONS (3)
  - CHOLELITHIASIS [None]
  - TRANSAMINASES INCREASED [None]
  - HEPATIC STEATOSIS [None]
